FAERS Safety Report 10988949 (Version 1)
Quarter: 2015Q2

REPORT INFORMATION
  Report Type: Spontaneous
  Country: SK (occurrence: SK)
  Receive Date: 20150405
  Receipt Date: 20150405
  Transmission Date: 20150821
  Serious: Yes (Other)
  Sender: FDA-Public Use
  Company Number: SK-AMGEN-SVKSP2015031128

PATIENT
  Age: 67 Year
  Sex: Female

DRUGS (4)
  1. PROLIA [Suspect]
     Active Substance: DENOSUMAB
     Indication: OSTEOPOROSIS
     Dosage: 60 MG, Q6MO
     Route: 058
     Dates: start: 201410
  2. BETMIGA [Concomitant]
     Active Substance: MIRABEGRON
     Indication: HYPERTONIC BLADDER
     Dosage: 50 MG, QD
     Dates: start: 201402
  3. URO VAXOM [Concomitant]
     Indication: CYSTITIS
     Dosage: UNK
     Dates: start: 2012, end: 20121010
  4. IALURIL [Concomitant]
     Indication: CYSTITIS
     Dosage: UNK
     Dates: start: 2013, end: 20140105

REACTIONS (2)
  - Cystitis klebsiella [Not Recovered/Not Resolved]
  - Bladder pain [Not Recovered/Not Resolved]

NARRATIVE: CASE EVENT DATE: 201411
